FAERS Safety Report 5296823-X (Version None)
Quarter: 2007Q2

REPORT INFORMATION
  Report Type: 
  Country: None (occurrence: None)
  Receive Date: 20070413
  Receipt Date: 20070402
  Transmission Date: 20071010
  Serious: Yes (Other)
  Sender: FDA-Public Use
  Company Number: CA-PFIZER INC-2007027408

PATIENT
  Age: 81 Year
  Sex: Male

DRUGS (3)
  1. XALATAN [Suspect]
     Dosage: FREQ:BEDTIME
     Route: 047
  2. BRIMONIDINE TARTRATE [Suspect]
  3. AZOPT [Suspect]

REACTIONS (3)
  - ARRHYTHMIA [None]
  - FLATULENCE [None]
  - WEIGHT DECREASED [None]
